FAERS Safety Report 4276919-1 (Version None)
Quarter: 2004Q1

REPORT INFORMATION
  Report Type: 
  Country: None (occurrence: None)
  Receive Date: 20040120
  Receipt Date: 20040108
  Transmission Date: 20041129
  Serious: Yes (Other)
  Sender: FDA-Public Use
  Company Number: 200410130BCC

PATIENT
  Age: 67 Year
  Sex: Female
  Weight: 56.6996 kg

DRUGS (2)
  1. ALEVE [Suspect]
     Indication: BACK PAIN
     Dosage: 220 MG, PRN, ORAL
     Route: 048
  2. HORMONE REPLACEMENT THERAPY [Concomitant]

REACTIONS (1)
  - EYE HAEMORRHAGE [None]
